FAERS Safety Report 7757001-5 (Version None)
Quarter: 2011Q3

REPORT INFORMATION
  Report Type: 
  Country: None (occurrence: None)
  Receive Date: 20110916
  Receipt Date: 20110916
  Transmission Date: 20111222
  Serious: No
  Sender: FDA-Public Use
  Company Number: None

PATIENT
  Age: 31 Year
  Sex: Male
  Weight: 813.29 kg

DRUGS (1)
  1. ROXICET [Suspect]
     Indication: PAIN
     Dosage: 5-325MG
     Route: 048

REACTIONS (2)
  - PRURITUS [None]
  - PRODUCT SUBSTITUTION ISSUE [None]
